FAERS Safety Report 14847591 (Version 1)
Quarter: 2018Q2

REPORT INFORMATION
  Report Type: Spontaneous
  Country: US (occurrence: US)
  Receive Date: 20180504
  Receipt Date: 20180504
  Transmission Date: 20180711
  Serious: No
  Sender: FDA-Public Use
  Company Number: US-BAYER-2018-086238

PATIENT
  Sex: Female

DRUGS (2)
  1. PRUNUS DULCIS [Concomitant]
     Dosage: UNK
  2. MIRALAX [Suspect]
     Active Substance: POLYETHYLENE GLYCOL 3350
     Route: 048

REACTIONS (2)
  - Product use issue [Unknown]
  - Wrong technique in product usage process [Unknown]
